FAERS Safety Report 7425776-0 (Version None)
Quarter: 2011Q2

REPORT INFORMATION
  Report Type: 
  Country: None (occurrence: None)
  Receive Date: 20110420
  Receipt Date: 20110406
  Transmission Date: 20111010
  Serious: Yes (Other)
  Sender: FDA-Public Use
  Company Number: US-JNJFOC-20110406015

PATIENT
  Age: 50 Year
  Sex: Female
  Weight: 53.98 kg

DRUGS (6)
  1. ZITHROMAX [Concomitant]
     Indication: ANTIBIOTIC THERAPY
     Route: 065
  2. CHILDREN'S BENADRYL ALLERGY [Suspect]
     Indication: SINUS CONGESTION
     Route: 048
  3. PROAIR HFA [Concomitant]
     Indication: ASTHMA
     Route: 065
  4. ADVAIR HFA [Concomitant]
     Indication: ASTHMA
     Route: 065
  5. CHILDREN'S BENADRYL ALLERGY [Suspect]
     Route: 048
  6. ALBUTEROL [Concomitant]
     Indication: ASTHMA
     Route: 065

REACTIONS (1)
  - ASTHMA [None]
